FAERS Safety Report 7258512-1 (Version None)
Quarter: 2011Q1

REPORT INFORMATION
  Report Type: 
  Country: None (occurrence: None)
  Receive Date: 20110129
  Receipt Date: 20100528
  Transmission Date: 20110831
  Serious: No
  Sender: FDA-Public Use
  Company Number: US-ABBOTT-10P-163-0647645-00

PATIENT
  Age: 78 Year
  Sex: Male

DRUGS (7)
  1. ATENOLOL [Concomitant]
     Indication: HYPERTENSION
  2. ASPIRIN [Concomitant]
     Indication: ANTICOAGULANT THERAPY
  3. FOLTX [Concomitant]
     Indication: VITAMIN SUPPLEMENTATION
  4. XANAX [Concomitant]
     Indication: ANXIETY
     Dosage: DAILY
  5. PRINIVIL [Concomitant]
     Indication: HYPERTENSION
  6. HUMIRA [Suspect]
     Indication: RHEUMATOID ARTHRITIS
     Dates: start: 20100401, end: 20100510
  7. ZOCOR [Concomitant]
     Indication: HYPERLIPIDAEMIA

REACTIONS (4)
  - PAIN IN EXTREMITY [None]
  - PAIN [None]
  - GAIT DISTURBANCE [None]
  - INSOMNIA [None]
